FAERS Safety Report 9236530 (Version 1)
Quarter: 2013Q2

REPORT INFORMATION
  Report Type: Spontaneous
  Country: US (occurrence: None)
  Receive Date: 20130415
  Receipt Date: 20130415
  Transmission Date: 20140414
  Serious: Yes (Death)
  Sender: FDA-Public Use
  Company Number: 2012US-004460

PATIENT
  Age: 52 Year
  Sex: Female
  Weight: 170 kg

DRUGS (23)
  1. OMONTYS (PEGINESATIDE) SOLUTION FOR INJECTION [Suspect]
     Indication: NEPHROGENIC ANAEMIA
     Route: 042
     Dates: start: 20121113, end: 20121113
  2. TRENTAL (PENTOXIFYLLINE) [Concomitant]
  3. NEXIUM (ESOMEPRAZOLE MAGNESIUM) [Concomitant]
  4. RENAL CAPS DIALYSIS/STRESS VITAMIN SUPPLEMENT [Concomitant]
  5. ATIVAN (LORAZEPAM) [Concomitant]
  6. SILVADENE (SULFADIAZINE SILVER) [Concomitant]
  7. NICORETTE (NICOTINE) [Concomitant]
  8. INSULIN (INSULIN HUMAN) [Concomitant]
  9. BACTRIM [Concomitant]
  10. NITROQUICK (GLYCERYL TRINITRATE) [Concomitant]
  11. OXYCODONE (OXYCODONE) [Concomitant]
  12. PLAVIX (CLOPIDOGREL BISULFATE) [Concomitant]
  13. RENAGEL (SEVELAMER) [Concomitant]
  14. PHOSLO (CALCIUM ACETATE) [Concomitant]
  15. SENSIPAR (CINACALCET HYDROCHLORIDE) [Concomitant]
  16. EPOGEN (EPOETIN ALFA) [Concomitant]
  17. GENTAMICIN SULFATE (GENTAMICIN SULFATE) [Concomitant]
  18. ZEMPLAR (PARICALCITOL) [Concomitant]
  19. CITRATE (SODIUM CITRATE) [Concomitant]
  20. HEPARIN (HEPARIN SODIUM) [Concomitant]
  21. ACETAMINOPHEN (PARACETAMOL) [Suspect]
  22. LOPERAMIDE (LOPERAMIDE) [Concomitant]
  23. PROCHLORPERAZINE (PROCHLORPERAZINE) [Concomitant]

REACTIONS (3)
  - Hypersensitivity [None]
  - Chest discomfort [None]
  - Electrocardiogram ST-T segment abnormal [None]
